FAERS Safety Report 9103291 (Version 2)
Quarter: 2013Q1

REPORT INFORMATION
  Report Type: Spontaneous
  Country: DE (occurrence: None)
  Receive Date: 20130125
  Receipt Date: 20130212
  Transmission Date: 20140127
  Serious: Yes (Other)
  Sender: FDA-Public Use
  Company Number: AUR-APL-2013-00861

PATIENT
  Age: 56 Year
  Sex: Female
  Weight: 120 kg

DRUGS (1)
  1. RAMIPRIL [Suspect]
     Indication: HYPERTENSION
     Route: 048

REACTIONS (2)
  - Oedema mouth [None]
  - Swollen tongue [None]
